FAERS Safety Report 15488595 (Version 1)
Quarter: 2018Q4

REPORT INFORMATION
  Report Type: Spontaneous
  Country: SE (occurrence: SE)
  Receive Date: 20181011
  Receipt Date: 20181011
  Transmission Date: 20190205
  Serious: Yes (Life-Threatening, Hospitalization)
  Sender: FDA-Public Use
  Company Number: SE-NOVOPROD-625227

PATIENT
  Age: 79 Year
  Sex: Male

DRUGS (2)
  1. FIASP [Suspect]
     Active Substance: INSULIN ASPART
     Indication: DIABETES MELLITUS
     Dosage: UNK
     Route: 065
     Dates: start: 20180625
  2. LEVAXIN [Concomitant]
     Active Substance: LEVOTHYROXINE SODIUM

REACTIONS (7)
  - Constipation [Recovering/Resolving]
  - Blood glucose increased [Recovering/Resolving]
  - Drug ineffective [Recovering/Resolving]
  - Heart rate abnormal [Recovering/Resolving]
  - Dry mouth [Recovering/Resolving]
  - Fatigue [Recovering/Resolving]
  - Product quality issue [Recovering/Resolving]

NARRATIVE: CASE EVENT DATE: 201806
